FAERS Safety Report 15227876 (Version 1)
Quarter: 2018Q3

REPORT INFORMATION
  Report Type: Spontaneous
  Country: US (occurrence: US)
  Receive Date: 20180706
  Receipt Date: 20180706
  Transmission Date: 20181010
  Serious: Yes (Other)
  Sender: FDA-Public Use
  Company Number: None

PATIENT
  Age: 45 Year
  Sex: Male
  Weight: 123.75 kg

DRUGS (6)
  1. CHOLECALCIFEROL 2000 UNIT TAB [Concomitant]
     Dates: start: 20170614
  2. JARDIANCE [Suspect]
     Active Substance: EMPAGLIFLOZIN
     Indication: TYPE 2 DIABETES MELLITUS
     Route: 048
  3. ZARONTIN 250MG CAPS [Concomitant]
     Dates: start: 20150722
  4. DILANTIN 100MG CAPS [Concomitant]
     Dates: start: 20150722
  5. DIVALPROEX SODIUM 250MG TBEC [Concomitant]
     Dates: start: 20150729
  6. LISINOPRIL 10MG TABS [Concomitant]
     Dates: start: 20150804

REACTIONS (1)
  - Seizure [None]

NARRATIVE: CASE EVENT DATE: 20180616
